FAERS Safety Report 9486975 (Version 3)
Quarter: 2013Q4

REPORT INFORMATION
  Report Type: Spontaneous
  Country: CA (occurrence: CA)
  Receive Date: 20130829
  Receipt Date: 20131008
  Transmission Date: 20140711
  Serious: Yes (Other)
  Sender: FDA-Public Use
  Company Number: CA-GLAXOSMITHKLINE-A1039239A

PATIENT
  Age: 52 Year
  Sex: Female

DRUGS (1)
  1. VOTRIENT [Suspect]
     Indication: SARCOMA
     Dosage: 800MG PER DAY
     Route: 065
     Dates: start: 20130301, end: 20130906

REACTIONS (2)
  - Malignant neoplasm progression [Unknown]
  - Visual impairment [Recovered/Resolved]
